FAERS Safety Report 8599383-0 (Version None)
Quarter: 2012Q3

REPORT INFORMATION
  Report Type: 
  Country: None (occurrence: None)
  Receive Date: 20120816
  Receipt Date: 20120810
  Transmission Date: 20120928
  Serious: Yes (Other)
  Sender: FDA-Public Use
  Company Number: DE-B.I. PHARMACEUTICALS,INC./RIDGEFIELD-2012-DE-01569DE

PATIENT
  Sex: Female

DRUGS (17)
  1. FLUNIPRAZEPAM [Concomitant]
     Dosage: DAILY DOSE: 1/2-1
  2. DREISAVIT [Concomitant]
     Dosage: 1 ANZ
  3. FENTANYL [Concomitant]
     Dosage: 100?G/H
  4. ZINK ORO TAT [Concomitant]
     Dosage: 1 ANZ
  5. LACTULADE [Concomitant]
  6. CIPROFLOXACIN [Concomitant]
     Dosage: 250 MG
  7. VANCOMYCIN [Concomitant]
     Dosage: 1000 MG
  8. PRAMIPEXOLE DIHYDROCHLORIDE [Suspect]
     Indication: RESTLESS LEGS SYNDROME
     Dosage: 0.36 MG
     Dates: start: 20080101
  9. RENVELA [Concomitant]
     Dosage: 4800 MG
  10. LEVOTHYROXINE SODIUM [Concomitant]
     Dosage: 50 MCG
  11. PROCALTIOL [Concomitant]
     Dosage: 0.25 MCG
  12. OMEPRAZOLE [Concomitant]
     Dosage: 20 MG
  13. MYDOCALM [Concomitant]
     Dosage: 150 MG
  14. DIPYRONE TAB [Concomitant]
     Dosage: 3 ANZ
  15. ASS-CT [Concomitant]
     Dosage: 100 MG
  16. FUROSEMID [Concomitant]
     Dosage: 1000 MG
  17. CALCIUMACETAT NEFRO 500 [Concomitant]
     Dosage: 1500 MG

REACTIONS (2)
  - ABNORMAL BEHAVIOUR [None]
  - SHOPLIFTING [None]
